FAERS Safety Report 8018889-6 (Version None)
Quarter: 2012Q1

REPORT INFORMATION
  Report Type: 
  Country: None (occurrence: None)
  Receive Date: 20120103
  Receipt Date: 20111229
  Transmission Date: 20120608
  Serious: Yes (Hospitalization)
  Sender: FDA-Public Use
  Company Number: FR-PFIZER INC-2011315680

PATIENT
  Age: 62 Year
  Sex: Male

DRUGS (6)
  1. DIAMOX SRC [Concomitant]
     Dosage: UNK
  2. LASIX [Suspect]
     Dosage: UNK
     Route: 048
     Dates: end: 20111125
  3. ALDACTONE [Suspect]
     Dosage: UNK
     Route: 048
     Dates: end: 20111125
  4. METFORMIN [Concomitant]
     Indication: TYPE 2 DIABETES MELLITUS
     Dosage: UNK
  5. BISOPROLOL FUMARATE [Suspect]
     Dosage: 25 MG, 2X/DAY
     Route: 048
     Dates: start: 20111115
  6. TIMOPTOL [Concomitant]
     Dosage: UNK

REACTIONS (4)
  - RASH MACULO-PAPULAR [None]
  - RASH GENERALISED [None]
  - RASH PRURITIC [None]
  - PRURITUS [None]
